FAERS Safety Report 5069509-4 (Version None)
Quarter: 2006Q3

REPORT INFORMATION
  Report Type: 
  Country: None (occurrence: None)
  Receive Date: 20060803
  Receipt Date: 20060608
  Transmission Date: 20061208
  Serious: Yes (Hospitalization)
  Sender: FDA-Public Use
  Company Number: AU-ROCHE-451062

PATIENT
  Age: 51 Year
  Sex: Male
  Weight: 51 kg

DRUGS (2)
  1. PEG-INTERFERON ALFA 2A (RO 25-8310) [Suspect]
     Dosage: DOSAGE FORM = LIQUID
     Route: 058
     Dates: start: 20060329, end: 20060607
  2. RIBAVIRIN [Suspect]
     Route: 048
     Dates: start: 20060329, end: 20060607

REACTIONS (1)
  - COGNITIVE DISORDER [None]
